FAERS Safety Report 4718030-9 (Version None)
Quarter: 2005Q3

REPORT INFORMATION
  Report Type: 
  Country: None (occurrence: None)
  Receive Date: 20050718
  Receipt Date: 20050223
  Transmission Date: 20060218
  Serious: No
  Sender: FDA-Public Use
  Company Number: 2005000446

PATIENT
  Age: 82 Year
  Sex: Male

DRUGS (16)
  1. TARCEVA [Suspect]
     Indication: LUNG CANCER METASTATIC
     Dosage: 150 MG (QD), ORAL;  150 MG (QOD), ORAL
     Route: 048
     Dates: start: 20050204, end: 20050214
  2. TARCEVA [Suspect]
     Indication: LUNG CANCER METASTATIC
     Dosage: 150 MG (QD), ORAL;  150 MG (QOD), ORAL
     Route: 048
     Dates: start: 20050214, end: 20050218
  3. CELECOXIB [Concomitant]
  4. TERAZOSIN HYDROCHLORIDE [Concomitant]
  5. GEFITINIB [Concomitant]
  6. GLYCERYL TRINITRATE [Concomitant]
  7. OCCUVITE [Concomitant]
  8. SOTALOL HCL [Concomitant]
  9. RANITIDINE HYDROCHLORIDE [Concomitant]
  10. ZOLEDRONIC ACID [Concomitant]
  11. SALMETEROL XINAFOATE [Concomitant]
  12. FUROSEMIDE [Concomitant]
  13. POTASSIUM CHLORIDE [Concomitant]
  14. PREDNISONE [Concomitant]
  15. FERROUS SULFATE TAB [Concomitant]
  16. ATORVASTATIN CALCIUM [Concomitant]

REACTIONS (1)
  - BLOOD CREATININE INCREASED [None]
